FAERS Safety Report 12586571 (Version 5)
Quarter: 2016Q4

REPORT INFORMATION
  Report Type: Spontaneous
  Country: US (occurrence: US)
  Receive Date: 20160725
  Receipt Date: 20161123
  Transmission Date: 20170207
  Serious: Yes (Hospitalization, Other)
  Sender: FDA-Public Use
  Company Number: US-PFIZER INC-2016139910

PATIENT
  Age: 66 Year
  Sex: Male
  Weight: 93.1 kg

DRUGS (7)
  1. SUTENT [Suspect]
     Active Substance: SUNITINIB MALATE
     Indication: MENINGEAL NEOPLASM
     Dosage: 50 MG, CYCLIC(TAKE 1 CAPSULE BY MOUTH DAILY, TAKE DAILY FOR FOUR WEEKS ON, 2 WEEKS OFF)
     Route: 048
     Dates: start: 20160317, end: 20160614
  2. CORTEF [Concomitant]
     Active Substance: HYDROCORTISONE
     Dosage: 20 MG, DAILY (5MG, TAKE 3 TABLETS IN THE AM AND 1 TABLET IN THE PM)
  3. SUTENT [Suspect]
     Active Substance: SUNITINIB MALATE
     Indication: BLINDNESS
  4. SUTENT [Suspect]
     Active Substance: SUNITINIB MALATE
     Indication: MENINGIOMA MALIGNANT
  5. LISINOPRIL. [Concomitant]
     Active Substance: LISINOPRIL
     Dosage: UNK
  6. VICODIN [Concomitant]
     Active Substance: ACETAMINOPHEN\HYDROCODONE BITARTRATE
     Dosage: UNK
  7. ROXICODONE [Concomitant]
     Active Substance: OXYCODONE HYDROCHLORIDE
     Indication: PAIN
     Dosage: UNK, AS NEEDED (5MG, TAKE 1-3 TABLETS BY MOUTH EVERY 4 HOURS)
     Route: 048

REACTIONS (11)
  - Blindness [Not Recovered/Not Resolved]
  - Decreased appetite [Unknown]
  - Meningioma [Unknown]
  - Visual acuity reduced [Unknown]
  - Weight increased [Unknown]
  - Product use issue [Unknown]
  - Condition aggravated [Unknown]
  - Stomatitis [Unknown]
  - Disease progression [Unknown]
  - Impaired healing [Unknown]
  - Lethargy [Unknown]
